FAERS Safety Report 6348987-4 (Version None)
Quarter: 2009Q3

REPORT INFORMATION
  Report Type: 
  Country: None (occurrence: None)
  Receive Date: 20090908
  Receipt Date: 20090827
  Transmission Date: 20100115
  Serious: Yes (Other)
  Sender: FDA-Public Use
  Company Number: CLOF-1000680

PATIENT
  Age: 63 Year
  Sex: Female
  Weight: 119 kg

DRUGS (3)
  1. CLOFARABINE    OR   PLACEBO (CODE NOT BROKEN) [Suspect]
     Indication: ACUTE MYELOID LEUKAEMIA
     Dosage: BLINDED, INFORMATION WITHELD
     Dates: start: 20090818, end: 20090822
  2. CYTARABINE [Suspect]
     Indication: ACUTE MYELOID LEUKAEMIA
     Dosage: 1 G/M2, QDX5, UNK
     Dates: start: 20090818, end: 20090822
  3. VANCOMYCIN [Concomitant]

REACTIONS (4)
  - BLISTER [None]
  - BLOOD LACTATE DEHYDROGENASE INCREASED [None]
  - ERYTHEMA [None]
  - RENAL FAILURE [None]
